FAERS Safety Report 10775585 (Version 1)
Quarter: 2015Q1

REPORT INFORMATION
  Report Type: Spontaneous
  Country: US (occurrence: None)
  Receive Date: 20150205
  Receipt Date: 20150205
  Transmission Date: 20150721
  Serious: Yes (Other)
  Sender: FDA-Public Use
  Company Number: ANTARES-LIT-2015-000009

PATIENT
  Age: 08 Year
  Sex: Female

DRUGS (13)
  1. CYCLOPHOSPHAMIDE. [Concomitant]
     Active Substance: CYCLOPHOSPHAMIDE
  2. THIOQUANNE [Concomitant]
  3. MONTELUKAST [Concomitant]
     Active Substance: MONTELUKAST SODIUM
  4. METHOTREXATE [Suspect]
     Active Substance: METHOTREXATE
     Indication: LYMPHOCYTIC LEUKAEMIA
  5. 6-MERCAPTOPURINE [Concomitant]
     Active Substance: MERCAPTOPURINE
  6. METHOTREXATE [Concomitant]
     Active Substance: METHOTREXATE
  7. PEG/L-ASPARAGINASE [Concomitant]
     Active Substance: PEGASPARGASE
  8. FLUTICASONE INHALER [Concomitant]
  9. VINCRISTINE [Suspect]
     Active Substance: VINCRISTINE
     Indication: LYMPHOCYTIC LEUKAEMIA
  10. VINCRISTINE [Concomitant]
     Active Substance: VINCRISTINE
  11. DOXORUBICIN [Concomitant]
     Active Substance: DOXORUBICIN
  12. CYTARABINE. [Concomitant]
     Active Substance: CYTARABINE
  13. ALBUTEROL INHALER [Concomitant]
     Active Substance: ALBUTEROL

REACTIONS (1)
  - Porphyria non-acute [None]
